FAERS Safety Report 17879730 (Version 1)
Quarter: 2020Q2

REPORT INFORMATION
  Report Type: Spontaneous
  Country: DE (occurrence: DE)
  Receive Date: 20200610
  Receipt Date: 20200610
  Transmission Date: 20200714
  Serious: Yes (Other)
  Sender: FDA-Public Use
  Company Number: NVSC2020DE161003

PATIENT
  Age: 80 Year
  Sex: Female

DRUGS (1)
  1. NAPROXEN - 1 A PHARMA 250 MG BEI REGELSCHMERZEN [Suspect]
     Active Substance: NAPROXEN
     Indication: PRODUCT USED FOR UNKNOWN INDICATION
     Route: 065

REACTIONS (2)
  - Visual impairment [Recovered/Resolved]
  - Mental impairment [Recovered/Resolved]
